FAERS Safety Report 19619906 (Version 1)
Quarter: 2021Q3

REPORT INFORMATION
  Report Type: Spontaneous
  Country: US (occurrence: US)
  Receive Date: 20210727
  Receipt Date: 20210727
  Transmission Date: 20211014
  Serious: No
  Sender: FDA-Public Use
  Company Number: None

PATIENT
  Age: 21 Year
  Sex: Male
  Weight: 117.9 kg

DRUGS (4)
  1. IBUPROFEN 800 MG PRN [Concomitant]
     Dates: start: 20210720
  2. PFIZER?BIONTECH COVID?19 VACCINE (1ST DOSE) [Concomitant]
     Dates: start: 20210721, end: 20210721
  3. CASIRIVIMAB/IMDEVIMAB [Suspect]
     Active Substance: CASIRIVIMAB\IMDEVIMAB
     Indication: COVID-19
     Dosage: ?          OTHER FREQUENCY:ONCE;?
     Route: 040
  4. CITALOPRAM 20 MG DAILY [Concomitant]
     Dates: start: 20200929

REACTIONS (3)
  - Chest discomfort [None]
  - Fatigue [None]
  - Oxygen saturation decreased [None]

NARRATIVE: CASE EVENT DATE: 20210724
